FAERS Safety Report 6199086-6 (Version None)
Quarter: 2009Q2

REPORT INFORMATION
  Report Type: 
  Country: None (occurrence: None)
  Receive Date: 20090519
  Receipt Date: 20090519
  Transmission Date: 20091009
  Serious: No
  Sender: FDA-Public Use
  Company Number: None

PATIENT
  Age: 63 Year
  Sex: Male
  Weight: 102.06 kg

DRUGS (1)
  1. TESTOSTERONE [Suspect]
     Indication: ANDROGEN DEFICIENCY
     Dosage: 5MG EVERY DAY TOP
     Route: 061
     Dates: start: 20090223, end: 20090426

REACTIONS (1)
  - RASH GENERALISED [None]
